FAERS Safety Report 23721382 (Version 1)
Quarter: 2024Q2

REPORT INFORMATION
  Report Type: Spontaneous
  Country: US (occurrence: US)
  Receive Date: 20240409
  Receipt Date: 20240409
  Transmission Date: 20240716
  Serious: No
  Sender: FDA-Public Use
  Company Number: US-TEVA-VS-3177267

PATIENT
  Age: 67 Year
  Sex: Female

DRUGS (1)
  1. UZEDY [Suspect]
     Active Substance: RISPERIDONE
     Indication: Bipolar II disorder
     Dosage: STRENGTH: 500.14 MG/ML
     Route: 065
     Dates: start: 20231129

REACTIONS (2)
  - Tremor [Unknown]
  - Product use in unapproved indication [Unknown]
